FAERS Safety Report 21449063 (Version 7)
Quarter: 2022Q4

REPORT INFORMATION
  Report Type: Report from Study
  Country: AU (occurrence: AU)
  Receive Date: 20221013
  Receipt Date: 20221201
  Transmission Date: 20230113
  Serious: Yes (Life-Threatening, Hospitalization, Other)
  Sender: FDA-Public Use
  Company Number: AU-BRISTOL-MYERS SQUIBB COMPANY-2022-117876

PATIENT
  Age: 48 Year
  Sex: Male
  Weight: 78 kg

DRUGS (22)
  1. POMALIDOMIDE [Suspect]
     Active Substance: POMALIDOMIDE
     Indication: Plasma cell myeloma
     Route: 048
     Dates: start: 20220809, end: 20220923
  2. TALQUETAMAB [Suspect]
     Active Substance: TALQUETAMAB
     Indication: Plasma cell myeloma
     Route: 058
     Dates: start: 20220712
  3. DEXAMETHASONE [Concomitant]
     Active Substance: DEXAMETHASONE
     Indication: Plasma cell myeloma
     Dosage: 1 IN 1 WK
     Route: 048
     Dates: start: 20220809
  4. ASPIRIN [Concomitant]
     Active Substance: ASPIRIN
     Indication: Antifungal prophylaxis
     Dosage: 1 IN 0.5 D
     Route: 048
     Dates: start: 20220101
  5. NALOXONE HYDROCHLORIDE\OXYCODONE HYDROCHLORIDE [Concomitant]
     Active Substance: NALOXONE HYDROCHLORIDE\OXYCODONE HYDROCHLORIDE
     Indication: Prophylaxis
     Dosage: 1 IN 0.5 D?5/2.5
     Route: 048
     Dates: start: 20220606
  6. NALOXONE HYDROCHLORIDE\OXYCODONE HYDROCHLORIDE [Concomitant]
     Active Substance: NALOXONE HYDROCHLORIDE\OXYCODONE HYDROCHLORIDE
     Dosage: 15 MG,1 IN 1 D
     Route: 048
     Dates: start: 20220713
  7. NALOXONE HYDROCHLORIDE\OXYCODONE HYDROCHLORIDE [Concomitant]
     Active Substance: NALOXONE HYDROCHLORIDE\OXYCODONE HYDROCHLORIDE
     Dosage: 15 MG,1 IN 1 D
     Route: 048
     Dates: start: 20220923, end: 20220928
  8. OXYCODONE HYDROCHLORIDE [Concomitant]
     Active Substance: OXYCODONE HYDROCHLORIDE
     Indication: Prophylaxis
     Dosage: AS REQUIRED
     Route: 048
     Dates: start: 20220606
  9. TAPENTADOL [Concomitant]
     Active Substance: TAPENTADOL
     Indication: Back pain
     Dosage: AS REQUIRED
     Route: 048
     Dates: start: 20220722
  10. VALACYCLOVIR HYDROCHLORIDE [Concomitant]
     Active Substance: VALACYCLOVIR HYDROCHLORIDE
     Indication: Antiviral prophylaxis
     Route: 048
     Dates: start: 20220101
  11. DOCUSATE SODIUM\SENNOSIDE B [Concomitant]
     Active Substance: DOCUSATE SODIUM\SENNOSIDE B
     Indication: Constipation prophylaxis
     Dosage: 1 DOSAGE FORMS, AS REQUIRED
     Route: 048
     Dates: start: 20220714
  12. MOVICOL [Concomitant]
     Active Substance: POLYETHYLENE GLYCOL 3350\POTASSIUM CHLORIDE\SODIUM BICARBONATE\SODIUM CHLORIDE
     Indication: Constipation prophylaxis
     Dosage: 1 DOSAGE FORMS, AS REQUIRED
     Route: 048
     Dates: start: 20220715
  13. METOCLOPRAMIDE [Concomitant]
     Active Substance: METOCLOPRAMIDE
     Indication: Prophylaxis of nausea and vomiting
     Dosage: AS REQUIRED
     Route: 048
     Dates: start: 20220726
  14. ONDANSETRON [Concomitant]
     Active Substance: ONDANSETRON
     Indication: Prophylaxis of nausea and vomiting
     Dosage: AS REQUIRED
     Route: 048
     Dates: start: 20220714
  15. BETAMETHASONE [Concomitant]
     Active Substance: BETAMETHASONE
     Indication: Skin exfoliation
     Dosage: 1 (AS REQUIRED)
     Route: 061
     Dates: start: 20220808
  16. METHYL SALICYLATE\PEPPERMINT OIL\SODIUM BICARBONATE\SODIUM CHLORIDE [Concomitant]
     Active Substance: METHYL SALICYLATE\PEPPERMINT OIL\SODIUM BICARBONATE\SODIUM CHLORIDE
     Indication: Product used for unknown indication
     Dosage: 1 IN 1 WK
     Route: 048
     Dates: start: 20220808
  17. SODIUM PHOSPHATE, MONOBASIC, ANHYDROUS [Concomitant]
     Active Substance: SODIUM PHOSPHATE, MONOBASIC, ANHYDROUS
     Indication: Mineral supplementation
     Dosage: 1 IN 1 WK
     Route: 048
     Dates: start: 20220923, end: 20220925
  18. ONDANSETRON [Concomitant]
     Active Substance: ONDANSETRON
     Indication: Prophylaxis of nausea and vomiting
     Dosage: 1 IN 1 WK
     Route: 048
     Dates: start: 20220923, end: 20220926
  19. MAGNESIUM SULFATE [Concomitant]
     Active Substance: MAGNESIUM SULFATE
     Indication: Mineral supplementation
     Dosage: ONCE
     Route: 042
     Dates: start: 20220924, end: 20220924
  20. CALTRATE VIT [Concomitant]
     Indication: Vitamin supplementation
     Dosage: 2-4 (ONCE)
     Route: 048
     Dates: start: 20220926, end: 20220926
  21. ERGOCALCIFEROL [Concomitant]
     Active Substance: ERGOCALCIFEROL
     Indication: Vitamin supplementation
     Dosage: 2-4 (ONCE)
     Route: 048
     Dates: start: 20220928
  22. ORDINE [MORPHINE SULFATE] [Concomitant]
     Indication: Pain prophylaxis
     Dosage: OTHER
     Route: 048
     Dates: start: 20220929, end: 20220930

REACTIONS (2)
  - Febrile neutropenia [Recovered/Resolved]
  - Arthralgia [Not Recovered/Not Resolved]

NARRATIVE: CASE EVENT DATE: 20220913
